FAERS Safety Report 13162907 (Version 1)
Quarter: 2017Q1

REPORT INFORMATION
  Report Type: Spontaneous
  Country: BR (occurrence: BR)
  Receive Date: 20170130
  Receipt Date: 20170130
  Transmission Date: 20170428
  Serious: Yes (Other)
  Sender: FDA-Public Use
  Company Number: BR-BAYER-2017-017763

PATIENT
  Age: 56 Year

DRUGS (2)
  1. NEXAVAR [Suspect]
     Active Substance: SORAFENIB
     Indication: METASTATIC RENAL CELL CARCINOMA
     Dosage: UNK
     Route: 048
     Dates: start: 20150918, end: 20151217
  2. SUNITINIB [Concomitant]
     Active Substance: SUNITINIB
     Dosage: UNK
     Dates: start: 20150107, end: 20161207

REACTIONS (2)
  - Metastases to liver [None]
  - Metastases to lung [None]

NARRATIVE: CASE EVENT DATE: 2015
